FAERS Safety Report 25043747 (Version 2)
Quarter: 2025Q2

REPORT INFORMATION
  Report Type: Spontaneous
  Country: NL (occurrence: NL)
  Receive Date: 20250306
  Receipt Date: 20250515
  Transmission Date: 20250716
  Serious: Yes (Other)
  Sender: TAKEDA
  Company Number: NL-INCYTE CORPORATION-2024IN013973

PATIENT
  Age: 11 Year

DRUGS (1)
  1. ICLUSIG [Suspect]
     Active Substance: PONATINIB HYDROCHLORIDE
     Indication: Hepatic sarcoma
     Dosage: 15 MILLIGRAM, QD
     Dates: start: 20241121, end: 20250109

REACTIONS (5)
  - Gastrointestinal fistula [Not Recovered/Not Resolved]
  - Tumour rupture [Not Recovered/Not Resolved]
  - Hepatic sarcoma [Not Recovered/Not Resolved]
  - Disease progression [Not Recovered/Not Resolved]
  - Off label use [Unknown]

NARRATIVE: CASE EVENT DATE: 20241121
